FAERS Safety Report 15305479 (Version 1)
Quarter: 2018Q3

REPORT INFORMATION
  Report Type: Report from Study
  Country: US (occurrence: US)
  Receive Date: 20180822
  Receipt Date: 20180822
  Transmission Date: 20181010
  Serious: Yes (Other)
  Sender: FDA-Public Use
  Company Number: US-ASTRAZENECA-2018SE97112

PATIENT
  Sex: Female

DRUGS (3)
  1. FARXIGA [Suspect]
     Active Substance: DAPAGLIFLOZIN PROPANEDIOL
     Indication: DIABETES MELLITUS
     Route: 048
     Dates: start: 2015, end: 2016
  2. JAUMET XR [Concomitant]
     Indication: DIABETES MELLITUS
  3. ASPIRIN. [Concomitant]
     Active Substance: ASPIRIN

REACTIONS (8)
  - Blindness [Unknown]
  - Tremor [Unknown]
  - Speech disorder [Unknown]
  - Disorientation [Unknown]
  - Decreased appetite [Unknown]
  - Gait inability [Unknown]
  - Dry mouth [Unknown]
  - Eye disorder [Unknown]
